FAERS Safety Report 7650068-4 (Version None)
Quarter: 2011Q3

REPORT INFORMATION
  Report Type: 
  Country: None (occurrence: None)
  Receive Date: 20110727
  Receipt Date: 20110720
  Transmission Date: 20111222
  Serious: Yes (Hospitalization)
  Sender: FDA-Public Use
  Company Number: 2011050208

PATIENT
  Age: 75 Year
  Sex: Female
  Weight: 81.4207 kg

DRUGS (21)
  1. TORSEMIDE [Suspect]
     Indication: CARDIAC FAILURE CONGESTIVE
     Dosage: 20 MG (20 MG,1 IN 1 D),ORAL
     Route: 048
     Dates: start: 20110303, end: 20110319
  2. METFORMIN HCL [Concomitant]
  3. METOPROLOL TARTRATE [Concomitant]
  4. POTASSIUM CHLORIDE [Concomitant]
  5. ROPINIROLE [Concomitant]
  6. HEPARIN [Concomitant]
  7. CANGRELOR VS CLOPIDOGREL VS. PLACEBO (CODE NOT BROKEN) CAPSULE [Suspect]
     Dosage: (48.6 MILLILITER,/HOUR),IV
     Route: 042
     Dates: start: 20110317, end: 20110317
  8. BIVALIRUDIN (BIVALIRUDIN) [Concomitant]
  9. ALBUTEROL SULFATE AUTOHALER [Concomitant]
  10. SIMVASTATIN [Concomitant]
  11. WARFARIN SODIUM [Concomitant]
  12. CANGRELOR VS CLOPIDOGREL VS. PLACEBO (CODE NOT BROKEN) CAPSULE [Suspect]
     Indication: PERCUTANEOUS CORONARY INTERVENTION
     Dosage: (6.2 MILLILITER),INTRAVENOUS BOLUS
     Route: 040
     Dates: start: 20110327, end: 20110327
  13. GLIPIZIDE [Concomitant]
  14. ASPIRIN [Concomitant]
  15. NITROGLYCERIN [Concomitant]
  16. DILTIAZEM [Concomitant]
  17. CLOPIDOGREL [Concomitant]
  18. ALLOPURINOL [Concomitant]
  19. GABAPENTIN [Concomitant]
  20. TIOTROPIUM (TIOTROPIUM) [Concomitant]
  21. CANGRELOR VS CLOPIDOGREL VS. PLACEBO (CODE NOT BROKEN) CAPSULE [Suspect]
     Dosage: 4 LOADING DOSE CAPSULES, ORAL ; 4 CAPSULES POST-INFUSION, ORAL
     Route: 048
     Dates: start: 20110317, end: 20110317

REACTIONS (1)
  - RENAL FAILURE ACUTE [None]
